FAERS Safety Report 4374670-0 (Version None)
Quarter: 2004Q2

REPORT INFORMATION
  Report Type: 
  Country: None (occurrence: None)
  Receive Date: 20040603
  Receipt Date: 20040519
  Transmission Date: 20050107
  Serious: Yes (Life-Threatening)
  Sender: FDA-Public Use
  Company Number: JP_040202632

PATIENT
  Age: 68 Year
  Sex: Female
  Weight: 51 kg

DRUGS (8)
  1. ZYPREXA [Suspect]
     Indication: SCHIZOPHRENIA, RESIDUAL TYPE
     Dosage: 5 MG/DAY
     Dates: start: 20030331
  2. NEULEPTIL (PERICIAZINE) [Concomitant]
  3. RISPERDAL [Concomitant]
  4. AKINETON [Concomitant]
  5. PYRETHIA (PROMETHAZINE HYDROCHLORIDE) [Concomitant]
  6. SENNOSIDE A [Concomitant]
  7. CHINESE MEDICINE [Concomitant]
  8. CETILO [Concomitant]

REACTIONS (6)
  - CARDIOPULMONARY FAILURE [None]
  - CONDITION AGGRAVATED [None]
  - CONSTIPATION [None]
  - HAEMORRHAGE [None]
  - HYPERGLYCAEMIA [None]
  - PAPILLARY THYROID CANCER [None]
